FAERS Safety Report 7973018-X (Version None)
Quarter: 2011Q4

REPORT INFORMATION
  Report Type: 
  Country: None (occurrence: None)
  Receive Date: 20111213
  Receipt Date: 20111205
  Transmission Date: 20120403
  Serious: Yes (Other)
  Sender: FDA-Public Use
  Company Number: IE-BRISTOL-MYERS SQUIBB COMPANY-15570906

PATIENT
  Age: 32 Year
  Sex: Female

DRUGS (3)
  1. ATAZANAVIR [Suspect]
     Indication: HIV INFECTION
     Route: 048
     Dates: start: 20101117
  2. RITONAVIR [Suspect]
     Indication: HIV INFECTION
     Route: 048
     Dates: start: 20101117
  3. TRUVADA [Suspect]
     Indication: HIV INFECTION
     Dosage: 1DF=1TAB
     Route: 048
     Dates: start: 20101117

REACTIONS (5)
  - MATERNAL EXPOSURE DURING PREGNANCY [None]
  - CERVICAL INCOMPETENCE [None]
  - CHORIOAMNIONITIS [None]
  - STILLBIRTH [None]
  - PREGNANCY [None]
